FAERS Safety Report 23450832 (Version 6)
Quarter: 2024Q2

REPORT INFORMATION
  Report Type: Spontaneous
  Country: AT (occurrence: AT)
  Receive Date: 20240129
  Receipt Date: 20240401
  Transmission Date: 20240716
  Serious: Yes (Hospitalization, Other)
  Sender: FDA-Public Use
  Company Number: AT-AMGEN-AUTNI2022094016

PATIENT
  Age: 41 Year
  Sex: Female

DRUGS (108)
  1. XGEVA [Suspect]
     Active Substance: DENOSUMAB
     Indication: Prophylaxis
     Dosage: 120 MG, ONCE EVERY 1 MO
     Route: 058
     Dates: start: 20161201
  2. PERTUZUMAB [Suspect]
     Active Substance: PERTUZUMAB
     Indication: HER2 positive breast cancer
     Dosage: 800 MG, ONCE EVERY 3 WK
     Route: 042
     Dates: start: 20161020
  3. PERTUZUMAB [Suspect]
     Active Substance: PERTUZUMAB
     Indication: Breast cancer metastatic
     Dosage: 420 MG, ONCE EVERY 3 WK
     Route: 042
     Dates: start: 20170112, end: 20170112
  4. PERTUZUMAB [Suspect]
     Active Substance: PERTUZUMAB
     Dosage: 420 MG, ONCE EVERY 3 WK
     Route: 042
     Dates: start: 20170202
  5. PERTUZUMAB [Suspect]
     Active Substance: PERTUZUMAB
     Dosage: 420 MG, ONCE EVERY 3 WK
     Route: 042
     Dates: start: 20170227, end: 20180108
  6. PERTUZUMAB [Suspect]
     Active Substance: PERTUZUMAB
     Dosage: 420 MG, ONCE EVERY 3 WK
     Route: 042
     Dates: start: 20190906, end: 20210409
  7. CAPECITABINE [Suspect]
     Active Substance: CAPECITABINE
     Indication: HER2 positive breast cancer
     Dosage: 1000 MG
     Route: 048
     Dates: start: 20210430
  8. CAPECITABINE [Suspect]
     Active Substance: CAPECITABINE
     Indication: Breast cancer metastatic
     Dosage: 1500 MG
     Route: 048
     Dates: start: 20210430, end: 20210903
  9. CAPECITABINE [Suspect]
     Active Substance: CAPECITABINE
     Dosage: 500 MG
     Route: 048
     Dates: start: 20210904, end: 20210927
  10. CAPECITABINE [Suspect]
     Active Substance: CAPECITABINE
     Dosage: 1000 MG
     Route: 048
     Dates: start: 20210929, end: 20220114
  11. CAPECITABINE [Suspect]
     Active Substance: CAPECITABINE
     Dosage: 1000 MG
     Route: 048
     Dates: start: 20220204, end: 20220930
  12. CAPECITABINE [Suspect]
     Active Substance: CAPECITABINE
     Dosage: 500 MG  (DATE OF LAST ADMINISTRATION: 24/OCT/2022)
     Route: 048
     Dates: start: 20220930
  13. TRASTUZUMAB DERUXTECAN [Suspect]
     Active Substance: TRASTUZUMAB DERUXTECAN
     Indication: HER2 positive breast cancer
     Dosage: 5.4 MG/KG, ONCE EVERY 3 WK
     Route: 040
     Dates: start: 20220924, end: 20221114
  14. TRASTUZUMAB DERUXTECAN [Suspect]
     Active Substance: TRASTUZUMAB DERUXTECAN
     Dosage: 4.4 MG/KG, ONCE EVERY 3 WK
     Route: 040
     Dates: start: 20221202, end: 20230714
  15. TRASTUZUMAB DERUXTECAN [Suspect]
     Active Substance: TRASTUZUMAB DERUXTECAN
     Dosage: 4.4 MG/KG, ONCE EVERY 3 WK
     Route: 040
     Dates: start: 20230811
  16. ARANESP [Suspect]
     Active Substance: DARBEPOETIN ALFA
     Indication: Anaemia prophylaxis
     Dosage: 150 UG, ONCE EVERY 1 WK
     Route: 058
     Dates: start: 20161201, end: 201701
  17. ARANESP [Suspect]
     Active Substance: DARBEPOETIN ALFA
     Dosage: UNK
     Route: 058
  18. TAXOTERE [Suspect]
     Active Substance: DOCETAXEL
     Indication: Breast cancer metastatic
     Dosage: 75 UG/M2, ONCE EVERY 3 WK
     Route: 042
     Dates: start: 20161020, end: 20161020
  19. TAXOTERE [Suspect]
     Active Substance: DOCETAXEL
     Indication: HER2 positive breast cancer
     Dosage: 75 UG/M2, ONCE EVERY 3 WK
     Route: 042
     Dates: start: 20161111, end: 20161111
  20. TAXOTERE [Suspect]
     Active Substance: DOCETAXEL
     Dosage: 100 UG/M2, ONCE EVERY 3 WK
     Route: 042
     Dates: start: 20161201, end: 20161222
  21. TAXOTERE [Suspect]
     Active Substance: DOCETAXEL
     Dosage: 100 UG/M2, ONCE EVERY 3 WK (DATE OF LAST ADMINISTARTION: 02/FEB/2017)
     Route: 042
     Dates: start: 20170112
  22. HERCEPTIN [Suspect]
     Active Substance: TRASTUZUMAB
     Indication: Breast cancer metastatic
     Dosage: 8 UG/KG, ONCE EVERY 3 WK
     Route: 042
     Dates: start: 20161020, end: 20170112
  23. HERCEPTIN [Suspect]
     Active Substance: TRASTUZUMAB
     Indication: HER2 positive breast cancer
     Dosage: 6 UG/KG, ONCE EVERY 3 WK
     Route: 042
     Dates: start: 20170227, end: 20180108
  24. HERCEPTIN [Suspect]
     Active Substance: TRASTUZUMAB
     Dosage: 6 UG/KG, ONCE EVERY 3 WK
     Route: 042
     Dates: start: 20190906, end: 20210927
  25. HERCEPTIN [Suspect]
     Active Substance: TRASTUZUMAB
     Dosage: 6 UG/KG, ONCE EVERY 3 WK
     Route: 042
     Dates: start: 20170202, end: 20181008
  26. HERCEPTIN [Suspect]
     Active Substance: TRASTUZUMAB
     Dosage: 8 UG/KG, ONCE EVERY 3 WK
     Route: 042
     Dates: start: 20170112, end: 20170112
  27. HERCEPTIN [Suspect]
     Active Substance: TRASTUZUMAB
     Dosage: 6 UG/KG, ONCE EVERY 3 WK
     Route: 042
     Dates: start: 20190906
  28. HERCEPTIN [Suspect]
     Active Substance: TRASTUZUMAB
     Dosage: 6 UG/KG, ONCE EVERY 3 WK (DATE OF LAST ADMINISTARTION: 30/SEP/2022)
     Route: 042
     Dates: start: 20210929
  29. CYTOXAN [Suspect]
     Active Substance: CYCLOPHOSPHAMIDE
     Indication: Breast cancer metastatic
     Dosage: 500 UG/M2 (MICROGRAM/SQ. METER)
     Route: 042
     Dates: start: 20161005, end: 20161005
  30. CYTOXAN [Suspect]
     Active Substance: CYCLOPHOSPHAMIDE
     Indication: HER2 positive breast cancer
  31. TUCATINIB [Suspect]
     Active Substance: TUCATINIB
     Indication: HER2 positive breast cancer
     Dosage: 300 MG, BID
     Route: 048
     Dates: start: 20210430, end: 20221023
  32. TUCATINIB [Suspect]
     Active Substance: TUCATINIB
     Indication: Breast cancer metastatic
     Dosage: 300 MG, MULTIPLE 1 DAYS
     Route: 048
     Dates: start: 20210929
  33. TUCATINIB [Suspect]
     Active Substance: TUCATINIB
     Dosage: 300 MG, (0.5 DAY) (0.5 DAY) (DATE OF LAST ADMINISTARTION: 23/OCT/2022)
     Route: 048
     Dates: start: 20210929
  34. KADCYLA [Suspect]
     Active Substance: ADO-TRASTUZUMAB EMTANSINE
     Indication: HER2 positive breast cancer
     Dosage: 3.6 MG/KG, ONCE EVERY 3 WK (DATE OF LAST ADMINISTRATION: 16/AUG/2019
     Route: 042
     Dates: start: 20180205
  35. KADCYLA [Suspect]
     Active Substance: ADO-TRASTUZUMAB EMTANSINE
     Indication: Breast cancer metastatic
  36. ELLENCE [Suspect]
     Active Substance: EPIRUBICIN HYDROCHLORIDE
     Indication: Breast cancer metastatic
     Dosage: 100 MILLIGRAM/SQ. METER (DATE OF LAST DOSE ADMINISTRATION: 05/OCT/2016)
     Route: 042
     Dates: start: 20161005
  37. ELLENCE [Suspect]
     Active Substance: EPIRUBICIN HYDROCHLORIDE
     Indication: HER2 positive breast cancer
  38. ONDANSETRON HYDROCHLORIDE [Concomitant]
     Active Substance: ONDANSETRON HYDROCHLORIDE
     Indication: Nausea
     Dosage: 8 MG, AS NEEDED
     Route: 048
     Dates: start: 20181105
  39. CLOBAZAM [Concomitant]
     Active Substance: CLOBAZAM
     Indication: Epilepsy
     Dosage: 5 DF UNK (5 TABLET)
     Route: 048
     Dates: start: 20220201
  40. HALDOL [Concomitant]
     Active Substance: HALOPERIDOL
     Indication: Prophylaxis of nausea and vomiting
     Dosage: 4 DROP (0.5 DAY)
     Route: 048
     Dates: start: 201702
  41. SERTRALINE [Concomitant]
     Active Substance: SERTRALINE HYDROCHLORIDE
     Indication: Depression
     Dosage: UNK
     Route: 048
     Dates: start: 20171016
  42. SERTRALINE [Concomitant]
     Active Substance: SERTRALINE HYDROCHLORIDE
     Dosage: UNK
     Route: 048
     Dates: start: 20230714
  43. LOPERAMIDE HYDROCHLORIDE [Concomitant]
     Active Substance: LOPERAMIDE HYDROCHLORIDE
     Indication: Diarrhoea
     Dosage: 2 MG
     Route: 048
     Dates: start: 20171127
  44. BISOPROLOL FUMARATE [Concomitant]
     Active Substance: BISOPROLOL FUMARATE
     Indication: Prophylaxis
     Dosage: 2.5 MG, BID
     Route: 048
     Dates: start: 20170227
  45. SUCRALAN [Concomitant]
     Indication: Prophylaxis
     Dosage: 5 ML
     Route: 048
     Dates: start: 20161215
  46. TRAZODONE HYDROCHLORIDE [Concomitant]
     Active Substance: TRAZODONE HYDROCHLORIDE
     Indication: Product used for unknown indication
     Dosage: UNK
     Route: 065
     Dates: start: 20221129
  47. RAMIPRIL [Concomitant]
     Active Substance: RAMIPRIL
     Indication: Cardiovascular event prophylaxis
     Dosage: 2.5 MG, BID
     Route: 048
     Dates: start: 20161112, end: 20161221
  48. RAMIPRIL [Concomitant]
     Active Substance: RAMIPRIL
     Dosage: 15 MG
     Route: 048
     Dates: start: 20170227
  49. RAMIPRIL [Concomitant]
     Active Substance: RAMIPRIL
     Dosage: 15 MILLIGRAM (0.5 DAY)
     Route: 048
     Dates: start: 20170227
  50. RAMIPRIL [Concomitant]
     Active Substance: RAMIPRIL
     Dosage: UNK (0.5 DAY)
     Route: 048
     Dates: start: 20161222, end: 20170226
  51. RAMIPRIL [Concomitant]
     Active Substance: RAMIPRIL
     Dosage: UNK
     Route: 065
     Dates: start: 20170227
  52. RAMIPRIL [Concomitant]
     Active Substance: RAMIPRIL
     Dosage: 2.5 MG TWICE DAILY
     Route: 048
     Dates: start: 20161112
  53. FENTANYL [Concomitant]
     Active Substance: FENTANYL\FENTANYL CITRATE
     Indication: Pain prophylaxis
     Dosage: 25 UG
     Route: 062
     Dates: start: 201706
  54. LEVETIRACETAM [Concomitant]
     Active Substance: LEVETIRACETAM
     Indication: Epilepsy
     Dosage: 750 MG, BID (750 MG TWICE DAILY)
     Route: 048
     Dates: start: 20220201
  55. LASIX [Concomitant]
     Active Substance: FUROSEMIDE
     Indication: Prophylaxis
     Dosage: 30 MG, QD (120 MG)
     Route: 048
     Dates: start: 20161114, end: 201611
  56. LASIX [Concomitant]
     Active Substance: FUROSEMIDE
     Dosage: 40 MG, QD
     Route: 040
     Dates: start: 20161112, end: 20161114
  57. KCL [Concomitant]
     Active Substance: POTASSIUM CHLORIDE
     Indication: Prophylaxis
     Dosage: 1200 MILLIGRAM
     Route: 048
     Dates: start: 20161117, end: 201702
  58. DEXIBUPROFEN [Concomitant]
     Active Substance: DEXIBUPROFEN
     Indication: Pain prophylaxis
     Dosage: 400 MG, TID (DATE OF LAST DOSE ADMINISTARTION: 25/NOV/2023)
     Route: 048
     Dates: start: 20210312
  59. CLAVAMOX [AMOXICILLIN TRIHYDRATE;CLAVULANATE POTASSIUM] [Concomitant]
     Indication: Product used for unknown indication
     Dosage: 1 G
     Route: 048
     Dates: start: 20161212, end: 20161216
  60. APREPITANT [Concomitant]
     Active Substance: APREPITANT
     Indication: Product used for unknown indication
     Dosage: UNK
     Route: 065
     Dates: start: 20221123
  61. BISOPROLOL FUMARATE [Concomitant]
     Active Substance: BISOPROLOL FUMARATE
     Indication: Product used for unknown indication
     Dosage: 1.25 MG, QD
     Route: 048
     Dates: start: 20161117, end: 20170226
  62. DEXAMETHASONE [Concomitant]
     Active Substance: DEXAMETHASONE
     Indication: Headache
     Dosage: 8 MILLIGRAM (0.5)
     Route: 065
     Dates: start: 20180117, end: 20180122
  63. DEXAMETHASONE [Concomitant]
     Active Substance: DEXAMETHASONE
     Dosage: 8 MILLIGRAM (0.5 DAY)
     Route: 048
     Dates: start: 20161202, end: 20161203
  64. DEXAMETHASONE [Concomitant]
     Active Substance: DEXAMETHASONE
     Dosage: UNK
     Route: 048
     Dates: start: 20221123, end: 20221215
  65. DEXAMETHASONE [Concomitant]
     Active Substance: DEXAMETHASONE
     Dosage: 8 MG, QD
     Route: 048
     Dates: start: 20180817, end: 20180831
  66. ESOMEPRAZOLE [Concomitant]
     Active Substance: ESOMEPRAZOLE
     Indication: Product used for unknown indication
     Dosage: UNK
     Route: 065
     Dates: start: 20221123
  67. XARELTO [Concomitant]
     Active Substance: RIVAROXABAN
     Indication: Product used for unknown indication
     Dosage: 10 MG, QD
     Route: 048
     Dates: start: 20161026, end: 201612
  68. MILNACIPRAN [Concomitant]
     Active Substance: MILNACIPRAN
     Indication: Product used for unknown indication
     Dosage: UNK
     Route: 065
     Dates: start: 20221123, end: 20230713
  69. HALCION [Concomitant]
     Active Substance: TRIAZOLAM
     Indication: Sleep disorder
     Dosage: UNK
     Route: 065
     Dates: start: 2016, end: 201610
  70. DEXAMETHASONE SODIUM PHOSPHATE [Concomitant]
     Active Substance: DEXAMETHASONE PHOSPHATE\DEXAMETHASONE SODIUM PHOSPHATE
     Indication: Prophylaxis
     Dosage: 8 MILLIGRAM (0.5 DAY)
     Route: 048
     Dates: start: 20180117, end: 20180122
  71. DEXAMETHASONE SODIUM PHOSPHATE [Concomitant]
     Active Substance: DEXAMETHASONE PHOSPHATE\DEXAMETHASONE SODIUM PHOSPHATE
     Dosage: 8 MILLIGRAM (0.5 DAY)
     Route: 048
     Dates: start: 20161202, end: 20161203
  72. LAXAGOL [Concomitant]
     Indication: Product used for unknown indication
     Dosage: UNK
     Route: 065
     Dates: start: 20201120
  73. METOCLOPRAMIDE HYDROCHLORIDE [Concomitant]
     Active Substance: METOCLOPRAMIDE HYDROCHLORIDE
     Indication: Nausea
     Dosage: 3 AMPULE
     Route: 040
     Dates: start: 20161113
  74. CEOLAT [Concomitant]
     Indication: Prophylaxis of nausea and vomiting
     Dosage: 10 ML, AS NEEDED  (10 MILLILITER (ASNECESSARY)
     Route: 048
     Dates: start: 20161112, end: 201702
  75. HYDROMORPHONE HYDROCHLORIDE [Concomitant]
     Active Substance: HYDROMORPHONE HYDROCHLORIDE
     Indication: Pain prophylaxis
     Dosage: 4 MG, BID
     Route: 048
     Dates: start: 20210410
  76. HYDROMORPHONE HYDROCHLORIDE [Concomitant]
     Active Substance: HYDROMORPHONE HYDROCHLORIDE
     Dosage: 2 MG
     Route: 048
     Dates: start: 20210326, end: 20210409
  77. HYDROMORPHONE HYDROCHLORIDE [Concomitant]
     Active Substance: HYDROMORPHONE HYDROCHLORIDE
     Dosage: 2 MG (0.5 DAY)
     Route: 048
     Dates: start: 20210326, end: 20210409
  78. HYDROMORPHONE HYDROCHLORIDE [Concomitant]
     Active Substance: HYDROMORPHONE HYDROCHLORIDE
     Dosage: 1.3 MG
     Route: 048
     Dates: start: 201706
  79. HYDROMORPHONE HYDROCHLORIDE [Concomitant]
     Active Substance: HYDROMORPHONE HYDROCHLORIDE
     Dosage: UNK
     Route: 065
     Dates: start: 20210309
  80. HYDROMORPHONE HYDROCHLORIDE [Concomitant]
     Active Substance: HYDROMORPHONE HYDROCHLORIDE
     Dosage: UNK
     Route: 065
     Dates: start: 20210410
  81. GLANDOMED [Concomitant]
     Indication: Product used for unknown indication
     Dosage: UNK UNK, AS NEEDED (UNK (AS NECESSARY)
     Route: 061
     Dates: start: 20161208, end: 20161222
  82. LIPEGFILGRASTIM [Concomitant]
     Active Substance: LIPEGFILGRASTIM
     Indication: Prophylaxis
     Dosage: 6 MG, ONCE EVERY 3 WK
     Route: 058
     Dates: start: 20170113, end: 20170203
  83. TAZOBACTAM [Concomitant]
     Active Substance: TAZOBACTAM
     Indication: Product used for unknown indication
     Dosage: 4.5 G, QD (4.5 GRAM, QD)
     Route: 040
     Dates: start: 20161208, end: 20161212
  84. GUAR GUM [Concomitant]
     Active Substance: GUAR GUM
     Indication: Prophylaxis
     Dosage: UNK
     Route: 048
     Dates: start: 20161102, end: 2016
  85. MOVICOL [Concomitant]
     Active Substance: POLYETHYLENE GLYCOL 3350\POTASSIUM CHLORIDE\SODIUM BICARBONATE\SODIUM CHLORIDE
     Indication: Constipation prophylaxis
     Dosage: 1200 MG, AS NEEDED
     Route: 048
     Dates: end: 201706
  86. ZOFRAN [Concomitant]
     Active Substance: ONDANSETRON HYDROCHLORIDE
     Indication: Prophylaxis of nausea and vomiting
     Dosage: 8 MG
     Route: 048
     Dates: start: 20161123, end: 20170204
  87. PERFALGAN [Concomitant]
     Active Substance: ACETAMINOPHEN
     Indication: Product used for unknown indication
     Dosage: 1 G, QD
     Route: 040
     Dates: start: 20161208, end: 20161212
  88. METOCLOPRAMIDE [Concomitant]
     Active Substance: METOCLOPRAMIDE
     Indication: Prophylaxis of nausea and vomiting
     Dosage: 10 MG, ONCE EVERY 3 WK
     Route: 040
     Dates: start: 20180205, end: 20190816
  89. PANTOPRAZOLE SODIUM [Concomitant]
     Active Substance: PANTOPRAZOLE SODIUM
     Indication: Product used for unknown indication
     Dosage: 40 MG, QD
     Route: 048
     Dates: start: 20161031, end: 20161123
  90. PANTOPRAZOLE SODIUM [Concomitant]
     Active Substance: PANTOPRAZOLE SODIUM
     Dosage: 40 MG
     Route: 048
     Dates: start: 20161018, end: 20161030
  91. PANTOPRAZOLE SODIUM [Concomitant]
     Active Substance: PANTOPRAZOLE SODIUM
     Dosage: 40 MG
     Route: 042
     Dates: start: 20161010, end: 20161018
  92. IMODIUM [Concomitant]
     Active Substance: LOPERAMIDE HYDROCHLORIDE
     Indication: Diarrhoea
     Dosage: 2 MG
     Route: 048
     Dates: start: 20171106, end: 20171127
  93. ALPRAZOLAM [Concomitant]
     Active Substance: ALPRAZOLAM
     Indication: Product used for unknown indication
     Dosage: 0.5 MG
     Route: 048
     Dates: end: 20161117
  94. LEVOCETIRIZINE DIHYDROCHLORIDE [Concomitant]
     Active Substance: LEVOCETIRIZINE DIHYDROCHLORIDE
     Indication: Product used for unknown indication
     Dosage: UNK
     Route: 065
     Dates: start: 20220801
  95. SERTRALINE HYDROCHLORIDE [Concomitant]
     Active Substance: SERTRALINE HYDROCHLORIDE
     Indication: Product used for unknown indication
     Dosage: 50 MG
     Route: 048
     Dates: end: 201710
  96. FILGRASTIM [Concomitant]
     Active Substance: FILGRASTIM
     Indication: Product used for unknown indication
     Dosage: 48 IU, ONCE EVERY 1 WK
     Route: 058
     Dates: start: 20161208, end: 20161211
  97. VIMPAT [Concomitant]
     Active Substance: LACOSAMIDE
     Indication: Product used for unknown indication
     Dosage: UNK
     Route: 065
     Dates: start: 20230602
  98. SPIRONOLACTONE [Concomitant]
     Active Substance: SPIRONOLACTONE
     Indication: Product used for unknown indication
     Dosage: UNK
     Route: 065
     Dates: start: 20230811
  99. FILGRASTIM [Concomitant]
     Active Substance: FILGRASTIM
     Indication: Product used for unknown indication
     Dosage: UNK
     Route: 065
     Dates: start: 20230811, end: 20230924
  100. TRACEL [Concomitant]
     Indication: Product used for unknown indication
     Dosage: UNK
     Route: 065
  101. AMINO ACIDS\DEXTROSE\ELECTROLYTES NOS\SOYBEAN OIL [Concomitant]
     Active Substance: AMINO ACIDS\DEXTROSE\ELECTROLYTES NOS\SOYBEAN OIL
     Indication: Product used for unknown indication
     Dosage: UNK
     Route: 065
  102. MYSOLINE [Concomitant]
     Active Substance: PRIMIDONE
     Indication: Product used for unknown indication
     Dosage: UNK
     Route: 065
  103. AMOXICILLIN\CLAVULANATE POTASSIUM [Concomitant]
     Active Substance: AMOXICILLIN\CLAVULANATE POTASSIUM
     Indication: Product used for unknown indication
     Dosage: UNK
     Route: 065
  104. CERNEVIT [Concomitant]
     Active Substance: VITAMINS
     Indication: Product used for unknown indication
     Dosage: UNK
     Route: 065
  105. MAGNESIUM CARBONATE\MAGNESIUM OXIDE [Concomitant]
     Active Substance: MAGNESIUM CARBONATE\MAGNESIUM OXIDE
     Indication: Product used for unknown indication
     Dosage: UNK
     Route: 065
  106. IBUPROFEN [Concomitant]
     Active Substance: IBUPROFEN
     Indication: Product used for unknown indication
     Dosage: UNK
     Route: 065
  107. OSELTAMIVIR [Concomitant]
     Active Substance: OSELTAMIVIR
     Indication: Product used for unknown indication
     Dosage: UNK
     Route: 065
  108. ACETAMINOPHEN [Concomitant]
     Active Substance: ACETAMINOPHEN
     Indication: Product used for unknown indication
     Dosage: UNK
     Route: 065

REACTIONS (6)
  - Hemianopia [Recovered/Resolved]
  - Nausea [Recovered/Resolved]
  - Thrombocytopenia [Recovering/Resolving]
  - White blood cell count decreased [Recovered/Resolved]
  - White blood cell count decreased [Not Recovered/Not Resolved]
  - Skin fissures [Recovered/Resolved]

NARRATIVE: CASE EVENT DATE: 20180522
